FAERS Safety Report 13873296 (Version 1)
Quarter: 2017Q3

REPORT INFORMATION
  Report Type: Report from Study
  Country: MX (occurrence: MX)
  Receive Date: 20170816
  Receipt Date: 20170816
  Transmission Date: 20171127
  Serious: Yes (Life-Threatening, Other)
  Sender: FDA-Public Use
  Company Number: PHHY2017MX119741

PATIENT
  Sex: Female

DRUGS (3)
  1. CO-DIOVAN [Suspect]
     Active Substance: HYDROCHLOROTHIAZIDE\VALSARTAN
     Indication: HYPERTENSION
     Dosage: 1 DF, (HYDROCHLOROTHIAZIDE 12.5 MG AND VALSARTAN 160 MG), QD, (10 YEARS AGO APPROXIMATELY)
     Route: 065
     Dates: end: 20170707
  2. PARACETAMOL [Concomitant]
     Active Substance: ACETAMINOPHEN
     Indication: PRODUCT USED FOR UNKNOWN INDICATION
     Route: 065
  3. RAMACE [Concomitant]
     Indication: PRODUCT USED FOR UNKNOWN INDICATION
     Route: 065

REACTIONS (3)
  - Renal injury [Unknown]
  - Blood uric acid increased [Unknown]
  - Breast cancer [Unknown]
